FAERS Safety Report 8481252-8 (Version None)
Quarter: 2012Q3

REPORT INFORMATION
  Report Type: 
  Country: None (occurrence: None)
  Receive Date: 20120702
  Receipt Date: 20120620
  Transmission Date: 20120928
  Serious: Yes (Other)
  Sender: FDA-Public Use
  Company Number: JP-NOVOPROD-354253

PATIENT
  Age: 67 Year
  Sex: Female
  Weight: 78 kg

DRUGS (5)
  1. CANDESARTAN CILEXETIL [Concomitant]
     Dosage: UNK
     Route: 048
     Dates: start: 19920101
  2. VICTOZA [Suspect]
     Dosage: 0.6 MG, QD
     Route: 058
     Dates: start: 20111121
  3. VICTOZA [Suspect]
     Dosage: 0.9 MG, QD
     Dates: start: 20111214
  4. DOXAZOSIN MESYLATE [Concomitant]
     Dosage: UNK
     Route: 048
     Dates: start: 19920101
  5. VICTOZA [Suspect]
     Indication: TYPE 2 DIABETES MELLITUS
     Dosage: 0.3 MG, QD
     Route: 058
     Dates: start: 20111114

REACTIONS (1)
  - TRANSIENT ISCHAEMIC ATTACK [None]
